FAERS Safety Report 5116085-3 (Version None)
Quarter: 2006Q3

REPORT INFORMATION
  Report Type: 
  Country: None (occurrence: None)
  Receive Date: 20060927
  Receipt Date: 20060418
  Transmission Date: 20061208
  Serious: Yes (Other)
  Sender: FDA-Public Use
  Company Number: US-BRISTOL-MYERS SQUIBB COMPANY-13350681

PATIENT
  Age: 66 Year
  Sex: Male
  Weight: 136 kg

DRUGS (1)
  1. DEFINITY [Suspect]
     Route: 040
     Dates: start: 20060407, end: 20060407

REACTIONS (3)
  - HYPERHIDROSIS [None]
  - HYPOTENSION [None]
  - URTICARIA [None]
